FAERS Safety Report 7577806-3 (Version None)
Quarter: 2011Q2

REPORT INFORMATION
  Report Type: 
  Country: None (occurrence: None)
  Receive Date: 20110628
  Receipt Date: 20110615
  Transmission Date: 20111010
  Serious: Yes (Other)
  Sender: FDA-Public Use
  Company Number: PHHY2011BR53701

PATIENT
  Sex: Female

DRUGS (2)
  1. SINGULAIR [Concomitant]
     Dosage: UNK
     Dates: start: 19980101
  2. FORMOTEROL FUMARATE [Suspect]
     Dosage: UNK UKN, UNK

REACTIONS (2)
  - CARDIAC DISORDER [None]
  - LUNG DISORDER [None]
